FAERS Safety Report 5244442-3 (Version None)
Quarter: 2007Q1

REPORT INFORMATION
  Report Type: 
  Country: None (occurrence: None)
  Receive Date: 20070222
  Receipt Date: 20070212
  Transmission Date: 20070707
  Serious: Yes (Other)
  Sender: FDA-Public Use
  Company Number: GB-AVENTIS-200612307GDDC

PATIENT
  Age: 66 Year
  Sex: Female

DRUGS (2)
  1. NASACORT [Suspect]
     Route: 045
  2. THYROID TAB [Concomitant]

REACTIONS (20)
  - ADRENAL INSUFFICIENCY [None]
  - ASTHENIA [None]
  - BODY TEMPERATURE DECREASED [None]
  - CHEST PAIN [None]
  - DIZZINESS [None]
  - DYSPNOEA [None]
  - FEELING COLD [None]
  - HEAT RASH [None]
  - HORMONE LEVEL ABNORMAL [None]
  - HOT FLUSH [None]
  - LOSS OF LIBIDO [None]
  - MALAISE [None]
  - MENTAL IMPAIRMENT [None]
  - NEUROPATHY [None]
  - OEDEMA PERIPHERAL [None]
  - PAIN IN EXTREMITY [None]
  - PERIPHERAL COLDNESS [None]
  - TREMOR [None]
  - VARICOSE VEIN [None]
  - WEIGHT INCREASED [None]
